FAERS Safety Report 7141182-0 (Version None)
Quarter: 2010Q4

REPORT INFORMATION
  Report Type: 
  Country: None (occurrence: None)
  Receive Date: 20101207
  Receipt Date: 20101125
  Transmission Date: 20110411
  Serious: Yes (Hospitalization, Other)
  Sender: FDA-Public Use
  Company Number: JP-AMGEN-JPNCT2010006317

PATIENT

DRUGS (20)
  1. PANITUMUMAB [Suspect]
     Indication: COLORECTAL CANCER METASTATIC
     Dosage: 6 MG/KG, Q2WK
     Route: 041
     Dates: start: 20100910
  2. MINOMYCIN [Suspect]
     Route: 065
  3. OXALIPLATIN [Concomitant]
     Indication: COLORECTAL CANCER
     Route: 041
     Dates: start: 20100910
  4. OXALIPLATIN [Concomitant]
  5. FLUOROURACIL [Concomitant]
     Indication: COLORECTAL CANCER
     Route: 040
     Dates: start: 20100910
  6. FLUOROURACIL [Concomitant]
     Route: 041
     Dates: start: 20100910
  7. FLUOROURACIL [Concomitant]
     Route: 040
  8. FLUOROURACIL [Concomitant]
     Route: 041
     Dates: start: 20100910
  9. CALCIUM LEVOFOLINATE [Concomitant]
     Indication: COLORECTAL CANCER
     Route: 041
     Dates: start: 20100910
  10. CALCIUM LEVOFOLINATE [Concomitant]
  11. ACTOS [Concomitant]
     Dosage: UNK
     Route: 048
  12. ANTIHISTAMINES [Concomitant]
     Indication: PROPHYLAXIS
     Route: 065
  13. CORTICOSTEROIDS [Concomitant]
     Indication: PROPHYLAXIS
     Route: 065
  14. RESTAMIN KOWA [Concomitant]
     Route: 048
  15. GRANISETRON HCL [Concomitant]
     Route: 042
  16. DEXART [Concomitant]
     Route: 042
  17. GASTER D [Concomitant]
     Route: 048
  18. GLYBURIDE [Concomitant]
     Route: 048
  19. DIOVAN [Concomitant]
     Route: 048
  20. SIMVASTATIN [Concomitant]
     Route: 048

REACTIONS (6)
  - DERMATITIS [None]
  - ERYTHEMA [None]
  - HEPATIC ENZYME INCREASED [None]
  - PARONYCHIA [None]
  - PRURITUS [None]
  - SKIN DISORDER [None]
